FAERS Safety Report 21613645 (Version 6)
Quarter: 2023Q2

REPORT INFORMATION
  Report Type: Report from Study
  Country: US (occurrence: US)
  Receive Date: 20221118
  Receipt Date: 20230412
  Transmission Date: 20230721
  Serious: No
  Sender: FDA-Public Use
  Company Number: US-002147023-NVSC2022US259656

PATIENT
  Sex: Male

DRUGS (7)
  1. ENTRESTO [Suspect]
     Active Substance: SACUBITRIL\VALSARTAN
     Indication: Product used for unknown indication
     Dosage: 1 DOSAGE FORM, BID (24/26MG)
     Route: 048
     Dates: start: 2022
  2. ENTRESTO [Suspect]
     Active Substance: SACUBITRIL\VALSARTAN
     Dosage: 1 DOSAGE FORM, BID (24/26MG)
     Route: 048
  3. ENTRESTO [Suspect]
     Active Substance: SACUBITRIL\VALSARTAN
     Dosage: 1 DOSAGE FORM, BID (24/26 MG)
     Route: 048
  4. LIPITOR [Concomitant]
     Active Substance: ATORVASTATIN CALCIUM
     Indication: Product used for unknown indication
     Dosage: UNK
     Route: 065
  5. MAGNESIUM [Concomitant]
     Active Substance: MAGNESIUM
     Indication: Product used for unknown indication
     Dosage: UNK
     Route: 065
  6. VITAMIN B [Concomitant]
     Active Substance: VITAMIN B
     Indication: Product used for unknown indication
     Dosage: UNK
     Route: 065
  7. VITAMIN D [Concomitant]
     Active Substance: VITAMIN D NOS
     Indication: Product used for unknown indication
     Route: 065

REACTIONS (22)
  - Weight increased [Unknown]
  - Allergic cough [Unknown]
  - Arthralgia [Unknown]
  - Throat clearing [Unknown]
  - Fatigue [Unknown]
  - Poor quality sleep [Unknown]
  - Head discomfort [Unknown]
  - Disturbance in attention [Unknown]
  - Fear of falling [Unknown]
  - Frustration tolerance decreased [Unknown]
  - Pain in extremity [Unknown]
  - Hypersensitivity [Unknown]
  - Paranasal sinus hypersecretion [Unknown]
  - Memory impairment [Recovering/Resolving]
  - Ophthalmic migraine [Recovered/Resolved]
  - Vestibular migraine [Recovered/Resolved]
  - Asthenia [Unknown]
  - Limb discomfort [Unknown]
  - Periarthritis [Recovering/Resolving]
  - Cough [Unknown]
  - Dehydration [Unknown]
  - Product dose omission in error [Unknown]

NARRATIVE: CASE EVENT DATE: 20220101
